FAERS Safety Report 13006302 (Version 11)
Quarter: 2018Q1

REPORT INFORMATION
  Report Type: Report from Study
  Country: FR (occurrence: FR)
  Receive Date: 20161207
  Receipt Date: 20180126
  Transmission Date: 20180508
  Serious: Yes (Death, Hospitalization)
  Sender: FDA-Public Use
  Company Number: FR-VIFOR (INTERNATIONAL) INC.-VIT-2016-08218

PATIENT
  Age: 77 Year
  Sex: Male
  Weight: 76.5 kg

DRUGS (6)
  1. ARANESP [Concomitant]
     Active Substance: DARBEPOETIN ALFA
     Indication: ANAEMIA
     Dates: start: 20131210
  2. UVEDOSE [Concomitant]
     Active Substance: CHOLECALCIFEROL
     Indication: VITAMIN D DEFICIENCY
     Dosage: 1 AMPULE
     Dates: start: 20150901
  3. FOSRENOL [Concomitant]
     Active Substance: LANTHANUM CARBONATE
     Indication: HYPERPHOSPHATAEMIA
     Dates: start: 20150627, end: 20160929
  4. VELPHORO [Suspect]
     Active Substance: FERRIC OXYHYDROXIDE
     Indication: BLOOD PHOSPHORUS ABNORMAL
     Route: 048
     Dates: start: 20160929, end: 20161128
  5. KARDEGIC [Concomitant]
     Active Substance: ASPIRIN DL-LYSINE
     Indication: PROPHYLAXIS
     Dates: start: 20130427
  6. FER MYLAN [Concomitant]
     Indication: ANAEMIA
     Dates: start: 20150310

REACTIONS (2)
  - Large intestine perforation [Fatal]
  - Pneumoperitoneum [Fatal]

NARRATIVE: CASE EVENT DATE: 20161127
